FAERS Safety Report 11317068 (Version 2)
Quarter: 2015Q4

REPORT INFORMATION
  Report Type: Spontaneous
  Country: FR (occurrence: FR)
  Receive Date: 20150728
  Receipt Date: 20151001
  Transmission Date: 20160304
  Serious: Yes (Other)
  Sender: FDA-Public Use
  Company Number: FR-ASTRAZENECA-2015SE71915

PATIENT
  Age: 16 Year
  Sex: Female
  Weight: 50 kg

DRUGS (4)
  1. XEROQUEL [Suspect]
     Active Substance: QUETIAPINE FUMARATE
     Indication: BIPOLAR DISORDER
     Dosage: PROGRESSIVE INCREASE OF DOSES FROM 50 MG PER DAY TO 200 MG PER DAY;
     Route: 048
     Dates: start: 201404, end: 2014
  2. XEROQUEL [Suspect]
     Active Substance: QUETIAPINE FUMARATE
     Indication: BIPOLAR DISORDER
     Route: 048
     Dates: start: 201410, end: 2014
  3. MELATONIN [Concomitant]
     Active Substance: MELATONIN
     Indication: SLEEP DISORDER
  4. XEROQUEL [Suspect]
     Active Substance: QUETIAPINE FUMARATE
     Indication: BIPOLAR DISORDER
     Dosage: PROGRESSIVE DECREASE TO 50 MG PER DAY
     Route: 048
     Dates: start: 2014

REACTIONS (6)
  - Thyroid neoplasm [Unknown]
  - Off label use [Not Recovered/Not Resolved]
  - Waist circumference increased [Unknown]
  - Hypersomnia [Recovered/Resolved]
  - Product use issue [Not Recovered/Not Resolved]
  - Benign ovarian tumour [Recovering/Resolving]

NARRATIVE: CASE EVENT DATE: 2014
